FAERS Safety Report 11982738 (Version 1)
Quarter: 2016Q1

REPORT INFORMATION
  Report Type: Spontaneous
  Country: US (occurrence: None)
  Receive Date: 20160129
  Receipt Date: 20160129
  Transmission Date: 20160526
  Serious: Yes (Other)
  Sender: FDA-Public Use
  Company Number: None

PATIENT
  Age: 78 Year
  Sex: Male

DRUGS (8)
  1. MELOXICAM. [Concomitant]
     Active Substance: MELOXICAM
  2. ENBREL [Suspect]
     Active Substance: ETANERCEPT
     Indication: RHEUMATOID ARTHRITIS
     Dosage: 1 SYRINGE  WEEKLY SUBCUTANEOUS
     Route: 058
     Dates: start: 20140226
  3. AMOXICILLIN. [Concomitant]
     Active Substance: AMOXICILLIN
  4. PREDNISONE. [Concomitant]
     Active Substance: PREDNISONE
  5. LAMOTRIGINE. [Concomitant]
     Active Substance: LAMOTRIGINE
  6. METHOTREXATE [Concomitant]
     Active Substance: METHOTREXATE
  7. WARFARIN [Concomitant]
     Active Substance: WARFARIN
  8. SPIRONOLACTONE. [Concomitant]
     Active Substance: SPIRONOLACTONE

REACTIONS (2)
  - Cerebral haemorrhage [None]
  - Cerebrovascular accident [None]

NARRATIVE: CASE EVENT DATE: 20160122
